FAERS Safety Report 17952502 (Version 5)
Quarter: 2020Q4

REPORT INFORMATION
  Report Type: Report from Study
  Country: US (occurrence: US)
  Receive Date: 20200626
  Receipt Date: 20201205
  Transmission Date: 20210113
  Serious: Yes (Death, Hospitalization, Other)
  Sender: FDA-Public Use
  Company Number: NVSC2020US175769

PATIENT
  Age: 42 Year
  Sex: Female
  Weight: 68.93 kg

DRUGS (2)
  1. ILARIS [Suspect]
     Active Substance: CANAKINUMAB
     Indication: JUVENILE IDIOPATHIC ARTHRITIS
     Dosage: 300 MG, Q4W
     Route: 030
  2. ILARIS [Suspect]
     Active Substance: CANAKINUMAB
     Indication: STILL^S DISEASE
     Dosage: 300 MG, QMO
     Route: 058
     Dates: start: 20200522

REACTIONS (17)
  - Cerebrovascular accident [Recovering/Resolving]
  - Chest pain [Unknown]
  - Headache [Unknown]
  - Pyrexia [Unknown]
  - Muscular weakness [Unknown]
  - Lethargy [Unknown]
  - Hypoaesthesia [Unknown]
  - Death [Fatal]
  - Cough [Unknown]
  - Frequent bowel movements [Unknown]
  - Vomiting [Unknown]
  - Thrombosis [Unknown]
  - Abdominal distension [Unknown]
  - Transient ischaemic attack [Recovering/Resolving]
  - Still^s disease [Unknown]
  - Dehydration [Unknown]
  - Decreased appetite [Unknown]

NARRATIVE: CASE EVENT DATE: 20200618
